FAERS Safety Report 8601612-1 (Version None)
Quarter: 2012Q3

REPORT INFORMATION
  Report Type: 
  Country: None (occurrence: None)
  Receive Date: 20120817
  Receipt Date: 20111223
  Transmission Date: 20120928
  Serious: Yes (Hospitalization)
  Sender: FDA-Public Use
  Company Number: US-BRISTOL-MYERS SQUIBB COMPANY-16308199

PATIENT
  Age: 72 Year
  Sex: Female

DRUGS (1)
  1. SPRYCEL [Suspect]
     Indication: CHRONIC MYELOID LEUKAEMIA
     Dosage: INTERRUPTED ON 02-DEC-2011
     Route: 048
     Dates: start: 20111101

REACTIONS (2)
  - DYSPNOEA [None]
  - DYSPNOEA EXERTIONAL [None]
